FAERS Safety Report 25741094 (Version 1)
Quarter: 2025Q3

REPORT INFORMATION
  Report Type: Report from Study
  Country: US (occurrence: US)
  Receive Date: 20250829
  Receipt Date: 20250829
  Transmission Date: 20251020
  Serious: Yes (Other)
  Sender: VERTEX
  Company Number: US-VERTEX PHARMACEUTICALS-2025-011041

PATIENT
  Age: 9 Year
  Sex: Male

DRUGS (4)
  1. ALYFTREK [Suspect]
     Active Substance: DEUTIVACAFTOR\TEZACAFTOR\VANZACAFTOR
     Indication: Cystic fibrosis
     Route: 048
     Dates: start: 202505, end: 2025
  2. ALYFTREK [Suspect]
     Active Substance: DEUTIVACAFTOR\TEZACAFTOR\VANZACAFTOR
     Dosage: 01 TABLET (4MG VANZACAFTOR/20MG TEZACAFTOR/50MG DEUTIVACAFTOR), QD
     Route: 048
     Dates: start: 20250606, end: 2025
  3. ALYFTREK [Suspect]
     Active Substance: DEUTIVACAFTOR\TEZACAFTOR\VANZACAFTOR
     Dosage: 02 TABLETS (4MG VANZACAFTOR/20MG TEZACAFTOR/50MG DEUTIVACAFTOR), QD
     Route: 048
     Dates: start: 2025, end: 2025
  4. ALYFTREK [Suspect]
     Active Substance: DEUTIVACAFTOR\TEZACAFTOR\VANZACAFTOR
     Dosage: 03 TABLETS (4MG VANZACAFTOR/20MG TEZACAFTOR/50MG DEUTIVACAFTOR), QD
     Route: 048
     Dates: start: 2025

REACTIONS (2)
  - Blood alkaline phosphatase increased [Recovering/Resolving]
  - Alanine aminotransferase increased [Recovering/Resolving]

NARRATIVE: CASE EVENT DATE: 20250714
